FAERS Safety Report 6879990-3 (Version None)
Quarter: 2010Q3

REPORT INFORMATION
  Report Type: 
  Country: None (occurrence: None)
  Receive Date: 20100728
  Receipt Date: 20100716
  Transmission Date: 20110219
  Serious: Yes (Other)
  Sender: FDA-Public Use
  Company Number: PHHY2010FR47910

PATIENT
  Age: 28 Year
  Sex: Male

DRUGS (1)
  1. GLEEVEC [Suspect]
     Dosage: UNK

REACTIONS (1)
  - BONE MARROW DISORDER [None]
